FAERS Safety Report 9681613 (Version 1)
Quarter: 2013Q4

REPORT INFORMATION
  Report Type: Spontaneous
  Country: US (occurrence: US)
  Receive Date: 20131111
  Receipt Date: 20131111
  Transmission Date: 20140711
  Serious: No
  Sender: FDA-Public Use
  Company Number: US-ENDO PHARMACEUTICALS INC.-HCDA20120060

PATIENT
  Sex: Female
  Weight: 93.07 kg

DRUGS (1)
  1. HYDROCODONE/ACETAMINOPHEN 7.5MG/500MG [Suspect]
     Indication: PAIN
     Dosage: 7.5/500 MG
     Route: 048
     Dates: start: 20120517

REACTIONS (2)
  - Sensation of foreign body [Not Recovered/Not Resolved]
  - Drug ineffective [Not Recovered/Not Resolved]
